FAERS Safety Report 23549062 (Version 4)
Quarter: 2024Q3

REPORT INFORMATION
  Report Type: Spontaneous
  Country: IN (occurrence: IN)
  Receive Date: 20240221
  Receipt Date: 20240926
  Transmission Date: 20241016
  Serious: Yes (Other)
  Sender: PFIZER
  Company Number: IN-PFIZER INC-2019181756

PATIENT
  Age: 66 Year
  Sex: Female
  Weight: 79 kg

DRUGS (13)
  1. PALBOCICLIB [Suspect]
     Active Substance: PALBOCICLIB
     Indication: Breast cancer metastatic
     Dosage: 125 MG
     Dates: start: 201712
  2. PALBOCICLIB [Suspect]
     Active Substance: PALBOCICLIB
     Dosage: 125 MG, CYCLIC (ONCE A DAY 21 DAYS ON FOLLOWED BY 7 DAYS OFF)
     Route: 048
     Dates: start: 20171209
  3. PALBOCICLIB [Suspect]
     Active Substance: PALBOCICLIB
     Dosage: 125 MG, CYCLIC (ONCE A DAY 21 DAYS ON FOLLOWED BY 7 DAYS OFF)
     Route: 048
     Dates: start: 20171216
  4. PALBOCICLIB [Suspect]
     Active Substance: PALBOCICLIB
     Dosage: 125 MG, CYCLIC (ONCE DAILY, 3 WEEKS THEN 1 WEEK OFF)
     Route: 048
  5. LETROZOLE [Concomitant]
     Active Substance: LETROZOLE
     Dosage: 2.5 MG, DAILY WITHOUT REGARD TO MEALS
     Route: 048
     Dates: start: 2017
  6. CALCIUM CARBONATE\CHOLECALCIFEROL [Concomitant]
     Active Substance: CALCIUM CARBONATE\CHOLECALCIFEROL
     Dosage: 200 MG, UNK
  7. CALCIUM CARBONATE\CHOLECALCIFEROL [Concomitant]
     Active Substance: CALCIUM CARBONATE\CHOLECALCIFEROL
     Dosage: 500 MG, 2X/DAY (EVERY 12 HRS DAILY)
  8. DENOSUMAB [Concomitant]
     Active Substance: DENOSUMAB
     Dosage: 120 MG, CYCLIC (EVERY 4 WEEKS)
     Route: 058
  9. DENOSUMAB [Concomitant]
     Active Substance: DENOSUMAB
     Dosage: 120 MG, EVERY 3 MONTHS
     Route: 058
  10. ULTRACET [Concomitant]
     Active Substance: ACETAMINOPHEN\TRAMADOL HYDROCHLORIDE
     Dosage: UNK, 2X/DAY (1-0-1)
  11. VITAMIN D NOS [Concomitant]
     Active Substance: CHOLECALCIFEROL\ERGOCALCIFEROL
     Dosage: 60000 DF, CYCLIC (EVERY 28 DAYS)
  12. MET XL [Concomitant]
     Dosage: 50 MG
  13. MECMAXOL [Concomitant]
     Dosage: 1 DF, 1X/DAY
     Route: 048

REACTIONS (17)
  - Neutrophil count decreased [Unknown]
  - Blood pressure systolic increased [Unknown]
  - White blood cell count decreased [Unknown]
  - Blood pressure diastolic decreased [Unknown]
  - Body mass index increased [Unknown]
  - Pain in extremity [Unknown]
  - Haemoglobin decreased [Unknown]
  - Blood creatinine increased [Unknown]
  - Body temperature decreased [Unknown]
  - Blood uric acid increased [Unknown]
  - Neutrophil percentage abnormal [Unknown]
  - Asthenia [Unknown]
  - Pain [Unknown]
  - Heart rate increased [Unknown]
  - Weight decreased [Unknown]
  - Osteopenia [Unknown]
  - Myalgia [Unknown]

NARRATIVE: CASE EVENT DATE: 20201230
